FAERS Safety Report 8251065-0 (Version None)
Quarter: 2012Q2

REPORT INFORMATION
  Report Type: 
  Country: None (occurrence: None)
  Receive Date: 20120402
  Receipt Date: 20120328
  Transmission Date: 20120825
  Serious: Yes (Hospitalization, Other)
  Sender: FDA-Public Use
  Company Number: PHHY2011JP73012

PATIENT
  Sex: Male

DRUGS (3)
  1. TASIGNA [Suspect]
     Indication: CHRONIC MYELOID LEUKAEMIA
     Dosage: 200 MG, UNK
     Route: 048
     Dates: start: 20110124, end: 20110221
  2. JANUVIA [Concomitant]
     Indication: DIABETES MELLITUS
     Dosage: 50 MG, UNK
     Route: 048
     Dates: start: 20110124
  3. TASIGNA [Suspect]
     Dosage: 400 MG, UNK
     Route: 048
     Dates: start: 20110222

REACTIONS (5)
  - BLOOD GLUCOSE INCREASED [None]
  - LIPASE INCREASED [None]
  - BLOOD POTASSIUM DECREASED [None]
  - RHABDOMYOLYSIS [None]
  - BLOOD BILIRUBIN UNCONJUGATED INCREASED [None]
